FAERS Safety Report 8624604-5 (Version None)
Quarter: 2012Q3

REPORT INFORMATION
  Report Type: 
  Country: None (occurrence: None)
  Receive Date: 20120827
  Receipt Date: 20120821
  Transmission Date: 20120928
  Serious: Yes (Life-Threatening, Hospitalization, Other)
  Sender: FDA-Public Use
  Company Number: FR-PFIZER INC-2012204202

PATIENT
  Age: 45 Year
  Sex: Female
  Weight: 58 kg

DRUGS (6)
  1. PROPYLTHIOURACIL [Concomitant]
     Dosage: 100 MG, 2X/DAY
  2. TERCIAN [Suspect]
     Dosage: 25 MG, 1X/DAY
     Route: 048
     Dates: end: 20120105
  3. PROPRANOLOL [Suspect]
     Dosage: UNK
     Route: 048
     Dates: end: 20120105
  4. PRAZEPAM [Suspect]
     Dosage: 8 MG
     Route: 048
     Dates: end: 20120105
  5. XANAX [Suspect]
     Dosage: 0.5 MG,
     Route: 048
     Dates: end: 20120105
  6. VALIUM [Suspect]
     Dosage: 10 MG, 3X/DAY
     Dates: end: 20120105

REACTIONS (11)
  - HYPOTENSION [None]
  - METABOLIC ACIDOSIS [None]
  - INTENTIONAL OVERDOSE [None]
  - CONFUSIONAL STATE [None]
  - HYPOCALCAEMIA [None]
  - HYPOPHOSPHATAEMIA [None]
  - PNEUMONIA ASPIRATION [None]
  - SINUS BRADYCARDIA [None]
  - SUICIDE ATTEMPT [None]
  - COMA [None]
  - RHABDOMYOLYSIS [None]
